FAERS Safety Report 5030524-8 (Version None)
Quarter: 2006Q2

REPORT INFORMATION
  Report Type: 
  Country: None (occurrence: None)
  Receive Date: 20060615
  Receipt Date: 20060606
  Transmission Date: 20061013
  Serious: Yes (Other)
  Sender: FDA-Public Use
  Company Number: 2006072649

PATIENT
  Sex: Female

DRUGS (1)
  1. ALPRAZOLAM [Suspect]
     Indication: ILL-DEFINED DISORDER

REACTIONS (5)
  - DEAFNESS UNILATERAL [None]
  - DRUG EXPOSURE DURING PREGNANCY [None]
  - FLUID RETENTION [None]
  - HYPERSENSITIVITY [None]
  - MYOCARDIAL INFARCTION [None]
